FAERS Safety Report 15232234 (Version 1)
Quarter: 2018Q3

REPORT INFORMATION
  Report Type: Spontaneous
  Country: US (occurrence: US)
  Receive Date: 20180802
  Receipt Date: 20180802
  Transmission Date: 20181010
  Serious: No
  Sender: FDA-Public Use
  Company Number: US-PFIZER INC-2018258601

PATIENT
  Age: 56 Year
  Sex: Female

DRUGS (2)
  1. TORISEL [Suspect]
     Active Substance: TEMSIROLIMUS
     Indication: CERVIX CANCER METASTATIC
  2. TORISEL [Suspect]
     Active Substance: TEMSIROLIMUS
     Indication: CERVIX CARCINOMA
     Dosage: UNK

REACTIONS (6)
  - Product use in unapproved indication [Unknown]
  - Oral pain [Unknown]
  - Hepatic enzyme decreased [Unknown]
  - Alopecia [Unknown]
  - Malaise [Unknown]
  - Eating disorder [Unknown]
